FAERS Safety Report 6340457-2 (Version None)
Quarter: 2009Q3

REPORT INFORMATION
  Report Type: 
  Country: None (occurrence: None)
  Receive Date: 20090904
  Receipt Date: 20090825
  Transmission Date: 20100115
  Serious: Yes (Other)
  Sender: FDA-Public Use
  Company Number: ES-RANBAXY-2009RR-26996

PATIENT
  Age: 36 Year
  Sex: Female

DRUGS (8)
  1. DIDANOSINE [Suspect]
     Indication: HIV INFECTION
     Dosage: UNK
  2. EFAVIRENZ [Suspect]
     Indication: HIV INFECTION
  3. INDINIVIR SULFATE [Suspect]
     Indication: HIV INFECTION
  4. NELFINAVIR [Suspect]
     Indication: HIV INFECTION
  5. NEVIRAPINE [Suspect]
     Indication: HIV INFECTION
  6. STAVUDINE [Suspect]
     Indication: HIV INFECTION
  7. LAMIVUDINE [Suspect]
     Indication: HIV INFECTION
  8. ZIDOVUDINE [Suspect]
     Indication: HIV INFECTION
     Dosage: UNK

REACTIONS (1)
  - PORTAL HYPERTENSION [None]
